FAERS Safety Report 19013322 (Version 1)
Quarter: 2021Q1

REPORT INFORMATION
  Report Type: Report from Study
  Country: US (occurrence: US)
  Receive Date: 20210315
  Receipt Date: 20210315
  Transmission Date: 20210420
  Serious: Yes (Other)
  Sender: FDA-Public Use
  Company Number: US-PURDUE-USA-2010-0048450

PATIENT
  Sex: Male

DRUGS (2)
  1. OXYCONTIN [Suspect]
     Active Substance: OXYCODONE HYDROCHLORIDE
     Indication: PAIN
     Dosage: 80 MG, BID
     Route: 048
     Dates: start: 201009
  2. OXYCONTIN [Suspect]
     Active Substance: OXYCODONE HYDROCHLORIDE
     Dosage: 10 MG, BID
     Route: 048

REACTIONS (9)
  - Hepatic cyst [Unknown]
  - Renal cyst [Unknown]
  - Impaired work ability [Unknown]
  - Disability [Unknown]
  - Drug dependence [Unknown]
  - Therapeutic response delayed [Unknown]
  - Appendix disorder [Unknown]
  - Abdominal discomfort [Unknown]
  - Gallbladder disorder [Unknown]
